FAERS Safety Report 8800686 (Version 2)
Quarter: 2012Q4

REPORT INFORMATION
  Report Type: 
  Country: NL (occurrence: NL)
  Receive Date: 20120921
  Receipt Date: 20121221
  Transmission Date: 20130627
  Serious: Yes (Hospitalization)
  Sender: FDA-Public Use
  Company Number: NL-AMGEN-NLDCT2012059666

PATIENT
  Age: 53 Year
  Sex: Female
  Weight: 56 kg

DRUGS (6)
  1. PEGFILGRASTIM [Suspect]
     Indication: DIFFUSE LARGE B-CELL LYMPHOMA
     Dosage: 6 mg, UNK
     Route: 058
     Dates: start: 20111108
  2. RITUXIMAB [Concomitant]
     Indication: DIFFUSE LARGE B-CELL LYMPHOMA
     Dosage: 520 mg, UNK
     Route: 042
     Dates: start: 20111108
  3. VINCRISTINE [Concomitant]
     Indication: DIFFUSE LARGE B-CELL LYMPHOMA
     Dosage: 2 mg, UNK
     Route: 042
     Dates: start: 20111108
  4. DOXORUBICIN [Concomitant]
     Indication: DIFFUSE LARGE B-CELL LYMPHOMA
     Dosage: 77 mg, UNK
     Route: 042
     Dates: start: 20111108
  5. CYCLOPHOSPHAMIDE [Concomitant]
     Indication: DIFFUSE LARGE B-CELL LYMPHOMA
     Dosage: 1160 mg, UNK
     Route: 042
     Dates: start: 20111108
  6. PREDNISONE [Concomitant]
     Indication: DIFFUSE LARGE B-CELL LYMPHOMA
     Dosage: 100 mg, UNK
     Route: 048
     Dates: start: 20111108

REACTIONS (1)
  - Haemoglobin decreased [Recovered/Resolved]
